FAERS Safety Report 22334079 (Version 4)
Quarter: 2023Q2

REPORT INFORMATION
  Report Type: Report from Study
  Country: NL (occurrence: NL)
  Receive Date: 20230517
  Receipt Date: 20230622
  Transmission Date: 20230722
  Serious: Yes (Hospitalization)
  Sender: FDA-Public Use
  Company Number: NL-TAKEDA-2023TUS047548

PATIENT
  Age: 59 Year
  Sex: Male

DRUGS (7)
  1. BRENTUXIMAB VEDOTIN [Suspect]
     Active Substance: BRENTUXIMAB VEDOTIN
     Indication: Diffuse large B-cell lymphoma
     Dosage: 142 MILLIGRAM
     Route: 042
     Dates: start: 20230501
  2. CISPLATIN [Suspect]
     Active Substance: CISPLATIN
     Indication: Diffuse large B-cell lymphoma
     Dosage: 193 MILLIGRAM
     Route: 042
     Dates: start: 20230502
  3. CYTARABINE [Suspect]
     Active Substance: CYTARABINE
     Indication: Diffuse large B-cell lymphoma
     Dosage: 3860 MILLIGRAM
     Route: 042
     Dates: start: 20230503
  4. CYTARABINE [Suspect]
     Active Substance: CYTARABINE
     Dosage: 3860 MILLIGRAM
     Route: 042
     Dates: start: 20230504
  5. RITUXIMAB [Concomitant]
     Active Substance: RITUXIMAB
     Indication: Diffuse large B-cell lymphoma
     Dosage: 723.8 MILLIGRAM
     Route: 042
     Dates: start: 20230501
  6. PEGFILGRASTIM [Concomitant]
     Active Substance: PEGFILGRASTIM
     Indication: Diffuse large B-cell lymphoma
     Dosage: 6 MILLIGRAM
     Route: 058
     Dates: start: 20230506
  7. DEXAMETHASONE [Concomitant]
     Active Substance: DEXAMETHASONE
     Indication: Diffuse large B-cell lymphoma
     Dosage: 40 MILLIGRAM
     Route: 065
     Dates: start: 20230501

REACTIONS (1)
  - Renal impairment [Recovered/Resolved]

NARRATIVE: CASE EVENT DATE: 20230508
